FAERS Safety Report 11654701 (Version 1)
Quarter: 2015Q4

REPORT INFORMATION
  Report Type: Spontaneous
  Country: US (occurrence: US)
  Receive Date: 20151023
  Receipt Date: 20151023
  Transmission Date: 20160304
  Serious: No
  Sender: FDA-Public Use
  Company Number: US-PFIZER INC-2015353824

PATIENT
  Age: 6 Decade
  Sex: Male

DRUGS (3)
  1. BUPROPION XL [Suspect]
     Active Substance: BUPROPION
     Indication: DEPRESSION
     Dosage: UNK
  2. ADDERALL [Suspect]
     Active Substance: AMPHETAMINE ASPARTATE\AMPHETAMINE SULFATE\DEXTROAMPHETAMINE SACCHARATE\DEXTROAMPHETAMINE SULFATE
     Indication: ATTENTION DEFICIT/HYPERACTIVITY DISORDER
     Dosage: UNK
  3. ZOLOFT [Suspect]
     Active Substance: SERTRALINE HYDROCHLORIDE
     Dosage: UNK

REACTIONS (3)
  - Orgasm abnormal [Not Recovered/Not Resolved]
  - Libido decreased [Not Recovered/Not Resolved]
  - Erectile dysfunction [Not Recovered/Not Resolved]
